FAERS Safety Report 7878927-8 (Version None)
Quarter: 2011Q4

REPORT INFORMATION
  Report Type: 
  Country: None (occurrence: None)
  Receive Date: 20111101
  Receipt Date: 20111018
  Transmission Date: 20120403
  Serious: Yes (Hospitalization)
  Sender: FDA-Public Use
  Company Number: US-BAYER-2011-055323

PATIENT
  Age: 48 Year
  Sex: Female
  Weight: 77 kg

DRUGS (8)
  1. DROSPIRENONE AND ETHINYL ESTRADIOL [Suspect]
     Indication: CONTRACEPTION
     Dosage: UNK
     Dates: start: 20060101, end: 20090101
  2. PRISTIQ [Concomitant]
     Indication: DEPRESSION
     Dosage: 50 MG, QD
     Route: 048
  3. LIPITOR [Concomitant]
     Dosage: 80 MG, HS
     Route: 048
  4. ICAR-C [Concomitant]
     Dosage: UNK UNK, QD
     Route: 048
  5. LISINOPRIL AND HYDROCHLOROTHIAZIDE [Concomitant]
     Indication: HYPERTENSION
     Dosage: UNK UNK, QD
     Route: 048
  6. HORMONES AND RELATED AGENTS [Concomitant]
     Indication: WEIGHT DECREASED
  7. YASMIN [Suspect]
     Indication: CONTRACEPTION
     Dosage: UNK
     Dates: start: 20060101, end: 20090101
  8. YAZ [Suspect]
     Indication: CONTRACEPTION
     Dosage: UNK
     Dates: start: 20060101, end: 20090101

REACTIONS (4)
  - PAIN [None]
  - SPEECH DISORDER [None]
  - ISCHAEMIC STROKE [None]
  - MEMORY IMPAIRMENT [None]
